FAERS Safety Report 5706156-2 (Version None)
Quarter: 2008Q2

REPORT INFORMATION
  Report Type: 
  Country: None (occurrence: None)
  Receive Date: 20080415
  Receipt Date: 20080409
  Transmission Date: 20081010
  Serious: Yes (Other)
  Sender: FDA-Public Use
  Company Number: BR-ASTRAZENECA-2008UW07275

PATIENT
  Age: 60 Year
  Sex: Male

DRUGS (1)
  1. SYMBICORT [Suspect]
     Indication: BRONCHITIS
     Dosage: 160/4.5 UG QD
     Route: 055
     Dates: start: 20080301

REACTIONS (4)
  - ASTHMA [None]
  - DYSPNOEA [None]
  - NAUSEA [None]
  - PYREXIA [None]
